FAERS Safety Report 8269717-5 (Version None)
Quarter: 2012Q2

REPORT INFORMATION
  Report Type: 
  Country: None (occurrence: None)
  Receive Date: 20120405
  Receipt Date: 20120326
  Transmission Date: 20120825
  Serious: Yes (Other)
  Sender: FDA-Public Use
  Company Number: 2012-029672

PATIENT
  Age: 35 Year
  Sex: Female
  Weight: 70 kg

DRUGS (4)
  1. ALKA-SELTZER PLUS SEVERE SINUS CONGESTION + COUGH LIQUID GELS (PARACET [Suspect]
     Indication: NASOPHARYNGITIS
     Dosage: 1 DF, QD, ORAL
     Route: 048
     Dates: start: 20120324, end: 20120324
  2. ONE A DAY (ONE-A-DAY [MINERALS NOS, VITAMINS NOS]) [Concomitant]
  3. IRON SUPPLEMENT (IRON [IRON]) [Concomitant]
  4. STOOL SOFTENER (DOCUSATE SODIUM) [Concomitant]

REACTIONS (5)
  - ABDOMINAL PAIN UPPER [None]
  - PRODUCT QUALITY ISSUE [None]
  - PAIN [None]
  - OROPHARYNGEAL PAIN [None]
  - CHOKING [None]
